FAERS Safety Report 6080738-3 (Version None)
Quarter: 2009Q1

REPORT INFORMATION
  Report Type: 
  Country: None (occurrence: None)
  Receive Date: 20090217
  Receipt Date: 20090204
  Transmission Date: 20090719
  Serious: No
  Sender: FDA-Public Use
  Company Number: US-ELI_LILLY_AND_COMPANY-US200902000880

PATIENT
  Sex: Female

DRUGS (1)
  1. CYMBALTA [Suspect]
     Indication: DEPRESSION
     Dosage: 90 MG, UNK
     Dates: start: 20080901, end: 20081201

REACTIONS (1)
  - HEPATIC ENZYME INCREASED [None]
